FAERS Safety Report 13153012 (Version 1)
Quarter: 2017Q1

REPORT INFORMATION
  Report Type: Spontaneous
  Country: US (occurrence: US)
  Receive Date: 20170126
  Receipt Date: 20170126
  Transmission Date: 20170428
  Serious: No
  Sender: FDA-Public Use
  Company Number: ALCN2017US000916

PATIENT
  Age: 68 Year
  Sex: Female

DRUGS (1)
  1. TOBRAMYCIN. [Suspect]
     Active Substance: TOBRAMYCIN
     Indication: HORDEOLUM
     Dosage: 1 GTT, QID
     Route: 047
     Dates: start: 201701

REACTIONS (3)
  - Erythema of eyelid [Recovering/Resolving]
  - Eyelids pruritus [Recovering/Resolving]
  - Eyelid oedema [Recovering/Resolving]

NARRATIVE: CASE EVENT DATE: 201701
